FAERS Safety Report 16439376 (Version 21)
Quarter: 2024Q3

REPORT INFORMATION
  Report Type: Report from Study
  Country: US (occurrence: US)
  Receive Date: 20190617
  Receipt Date: 20240830
  Transmission Date: 20241017
  Serious: Yes (Life-Threatening, Other)
  Sender: TAKEDA
  Company Number: US-SHIRE-US201919349

PATIENT
  Age: 65 Year
  Sex: Female

DRUGS (3)
  1. LANADELUMAB [Suspect]
     Active Substance: LANADELUMAB
     Indication: Hereditary angioedema
     Dosage: 300 MILLIGRAM, Q2WEEKS
     Route: 058
     Dates: start: 20180118
  2. LANADELUMAB [Suspect]
     Active Substance: LANADELUMAB
     Indication: Prophylaxis
     Dosage: 300 MILLIGRAM, Q2WEEKS
     Route: 058
  3. LANADELUMAB [Suspect]
     Active Substance: LANADELUMAB
     Dosage: 300 MILLIGRAM, Q2WEEKS
     Route: 058
     Dates: start: 20181114

REACTIONS (21)
  - COVID-19 [Unknown]
  - Bedridden [Unknown]
  - Weight decreased [Unknown]
  - Hereditary angioedema [Recovering/Resolving]
  - Arthropod bite [Recovering/Resolving]
  - Incision site impaired healing [Recovering/Resolving]
  - Cerebrovascular accident [Unknown]
  - Rib fracture [Unknown]
  - Swelling [Unknown]
  - Hypoaesthesia [Unknown]
  - Dermatitis contact [Unknown]
  - Plantar fasciitis [Unknown]
  - Kidney infection [Recovering/Resolving]
  - Vasculitis [Unknown]
  - Multiple allergies [Unknown]
  - Exostosis [Unknown]
  - Stress [Recovered/Resolved]
  - Somnolence [Recovered/Resolved]
  - Product distribution issue [Recovered/Resolved]
  - Inappropriate schedule of product administration [Recovering/Resolving]
  - Urinary tract infection [Recovering/Resolving]

NARRATIVE: CASE EVENT DATE: 20230121
